FAERS Safety Report 4541118-2 (Version None)
Quarter: 2004Q4

REPORT INFORMATION
  Report Type: 
  Country: None (occurrence: None)
  Receive Date: 20041228
  Receipt Date: 20041214
  Transmission Date: 20050328
  Serious: No
  Sender: FDA-Public Use
  Company Number: A01200406318

PATIENT

DRUGS (1)
  1. CLOPIDOGREL BISULFATE [Suspect]
     Dosage: ORAL
     Route: 048

REACTIONS (1)
  - MYELOFIBROSIS [None]
